FAERS Safety Report 24624246 (Version 1)
Quarter: 2024Q4

REPORT INFORMATION
  Report Type: Spontaneous
  Country: US (occurrence: None)
  Receive Date: 20241115
  Receipt Date: 20241115
  Transmission Date: 20250115
  Serious: Yes (Hospitalization)
  Sender: Public
  Company Number: None

PATIENT
  Age: 69 Year
  Sex: Female

DRUGS (4)
  1. WINREVAIR [Suspect]
     Active Substance: SOTATERCEPT-CSRK
     Dosage: OTHER FREQUENCY : EVERY21DAYS;?
     Route: 058
     Dates: start: 202408
  2. OPSUMIT [Concomitant]
  3. UPTRAVI [Concomitant]
  4. ADEMPAS [Concomitant]

REACTIONS (2)
  - Therapy cessation [None]
  - Mouth haemorrhage [None]

NARRATIVE: CASE EVENT DATE: 20241111
